FAERS Safety Report 8848897 (Version 1)
Quarter: 2012Q4

REPORT INFORMATION
  Report Type: Spontaneous
  Country: GR (occurrence: None)
  Receive Date: 20121016
  Receipt Date: 20121016
  Transmission Date: 20130627
  Serious: Yes (Death, Hospitalization)
  Sender: FDA-Public Use
  Company Number: FK201202976

PATIENT
  Age: 22 Month
  Sex: Female

DRUGS (6)
  1. METHYLPREDNISOLONE [Suspect]
     Indication: PYREXIA
     Dosage: 30 mg/kg, days 15 to 17 for 3 consecutive days, Intravenous drip
     Route: 041
  2. METHYLPREDNISOLONE [Suspect]
     Indication: PYREXIA
     Dosage: day 75 and day 77, Intravenous drip
  3. ASPIRIN [Suspect]
     Indication: KAWASAKI^S DISEASE
     Dosage: 100 mg/kg, per day starting on day 8
  4. ASPIRIN [Suspect]
     Indication: KAWASAKI^S DISEASE
     Dosage: 5 mg/kg, day 75: dose decrease (per day)
  5. INFLIXIMAB (INFLIXIMAB) [Concomitant]
  6. IMMUNE GLOBULIN (IMMUNOGLOBULIN) [Concomitant]

REACTIONS (9)
  - Thrombocytosis [None]
  - Coronary artery aneurysm [None]
  - Myocardial ischaemia [None]
  - Juvenile idiopathic arthritis [None]
  - Abdominal pain [None]
  - Aortic valve incompetence [None]
  - Mitral valve incompetence [None]
  - Pulse absent [None]
  - General physical health deterioration [None]
